FAERS Safety Report 5443326-5 (Version None)
Quarter: 2007Q3

REPORT INFORMATION
  Report Type: 
  Country: None (occurrence: None)
  Receive Date: 20070905
  Receipt Date: 20070822
  Transmission Date: 20080115
  Serious: Yes (Other)
  Sender: FDA-Public Use
  Company Number: JP-ASTRAZENECA-2007AP05481

PATIENT
  Age: 24312 Day
  Sex: Male

DRUGS (6)
  1. SEROQUEL [Suspect]
     Indication: DELIRIUM
     Route: 048
     Dates: start: 20070813, end: 20070820
  2. SEROQUEL [Suspect]
     Indication: INSOMNIA
     Route: 048
     Dates: start: 20070813, end: 20070820
  3. PHENYTOIN SODIUM CAP [Concomitant]
     Indication: CONVULSION PROPHYLAXIS
     Route: 048
     Dates: start: 20070727
  4. EBRANTIL [Concomitant]
     Indication: POLLAKIURIA
     Route: 048
     Dates: start: 20070803, end: 20070821
  5. UBRETID [Concomitant]
     Indication: POLLAKIURIA
     Route: 048
     Dates: start: 20070803, end: 20070821
  6. DORAL [Concomitant]
     Indication: INSOMNIA
     Route: 048
     Dates: start: 20070809, end: 20070820

REACTIONS (3)
  - ALANINE AMINOTRANSFERASE INCREASED [None]
  - ASPARTATE AMINOTRANSFERASE INCREASED [None]
  - BLOOD CREATINE PHOSPHOKINASE INCREASED [None]
